FAERS Safety Report 18425378 (Version 2)
Quarter: 2020Q4

REPORT INFORMATION
  Report Type: Spontaneous
  Country: US (occurrence: US)
  Receive Date: 20201026
  Receipt Date: 20201104
  Transmission Date: 20210114
  Serious: Yes (Other)
  Sender: FDA-Public Use
  Company Number: US-AUROBINDO-AUR-APL-2020-053558

PATIENT
  Age: 34 Year
  Sex: Male

DRUGS (2)
  1. GABAPENTIN TABLETS USP 600MG [Suspect]
     Active Substance: GABAPENTIN
     Indication: PRODUCT USED FOR UNKNOWN INDICATION
     Dosage: 2 TABLETS IN THE MORNING, IN THE AFTERNOON, AND AT NIGHT
     Route: 065
     Dates: start: 20201013
  2. GABAPENTIN TABLETS USP 600MG [Suspect]
     Active Substance: GABAPENTIN
     Dosage: UNK (2ND DAY OF TAKING)
     Route: 065
     Dates: start: 20201014

REACTIONS (8)
  - Seizure [Unknown]
  - Diarrhoea [Unknown]
  - Fatigue [Unknown]
  - Discomfort [Unknown]
  - Anger [Unknown]
  - Drug ineffective [Unknown]
  - Mutism [Unknown]
  - Product substitution issue [Unknown]

NARRATIVE: CASE EVENT DATE: 20201013
